FAERS Safety Report 19349370 (Version 1)
Quarter: 2021Q2

REPORT INFORMATION
  Report Type: Spontaneous
  Country: US (occurrence: US)
  Receive Date: 20210528
  Receipt Date: 20210528
  Transmission Date: 20210717
  Serious: No
  Sender: FDA-Public Use
  Company Number: None

PATIENT
  Age: 60 Year
  Sex: Male

DRUGS (8)
  1. OPSUMIT [Suspect]
     Active Substance: MACITENTAN
     Indication: PULMONARY ARTERIAL HYPERTENSION
     Route: 048
     Dates: start: 20210506
  2. LEVOTHYROXINE. [Concomitant]
     Active Substance: LEVOTHYROXINE
  3. BUMETANDINE [Concomitant]
  4. SPIRONOLACTONE. [Concomitant]
     Active Substance: SPIRONOLACTONE
  5. SILDENAFIL. [Concomitant]
     Active Substance: SILDENAFIL
  6. METOLAZONE. [Concomitant]
     Active Substance: METOLAZONE
  7. OPSUMIT [Suspect]
     Active Substance: MACITENTAN
     Indication: HERITABLE PULMONARY ARTERIAL HYPERTENSION
     Route: 048
     Dates: start: 20210506
  8. ATORVASTATIN [Concomitant]
     Active Substance: ATORVASTATIN

REACTIONS (5)
  - Peripheral swelling [None]
  - Stasis dermatitis [None]
  - Cellulitis [None]
  - Erythema [None]
  - Scab [None]

NARRATIVE: CASE EVENT DATE: 20210508
